FAERS Safety Report 5833975-4 (Version None)
Quarter: 2008Q3

REPORT INFORMATION
  Report Type: 
  Country: None (occurrence: None)
  Receive Date: 20080805
  Receipt Date: 20080722
  Transmission Date: 20090109
  Serious: Yes (Hospitalization)
  Sender: FDA-Public Use
  Company Number: US-ELI_LILLY_AND_COMPANY-US200806004612

PATIENT
  Sex: Female

DRUGS (7)
  1. HUMALOG [Suspect]
     Dates: start: 20070701
  2. HUMALOG [Suspect]
  3. HUMULIN N [Suspect]
  4. BYETTA [Concomitant]
     Dosage: 5 UG, 2/D
     Dates: start: 20060201
  5. BYETTA [Concomitant]
     Dosage: 10 UG, 2/D
  6. AMBIEN [Concomitant]
     Dosage: UNK, AS NEEDED
  7. GLUCOPHAGE [Concomitant]
     Dosage: 1000 MG, 2/D

REACTIONS (2)
  - DRUG EXPOSURE DURING PREGNANCY [None]
  - PRE-ECLAMPSIA [None]
